FAERS Safety Report 26144087 (Version 1)
Quarter: 2025Q4

REPORT INFORMATION
  Report Type: Spontaneous
  Country: US (occurrence: US)
  Receive Date: 20251211
  Receipt Date: 20251211
  Transmission Date: 20260118
  Serious: Yes (Other)
  Sender: RANBAXY
  Company Number: US-SUN PHARMACEUTICAL INDUSTRIES INC-2025R1-540261

PATIENT
  Age: 83 Year
  Sex: Female

DRUGS (2)
  1. MEDROXYPROGESTERONE [Suspect]
     Active Substance: MEDROXYPROGESTERONE
     Indication: Osteoporosis
     Dosage: UNK
     Route: 065
  2. ESTROGENS [Suspect]
     Active Substance: ESTROGENS
     Indication: Osteoporosis
     Dosage: UNK
     Route: 065

REACTIONS (4)
  - Vulvovaginal dryness [Unknown]
  - Dyspareunia [Unknown]
  - Hot flush [Unknown]
  - Mood swings [Unknown]
